FAERS Safety Report 19938981 (Version 3)
Quarter: 2021Q4

REPORT INFORMATION
  Report Type: Spontaneous
  Country: SE (occurrence: SE)
  Receive Date: 20211011
  Receipt Date: 20211102
  Transmission Date: 20220304
  Serious: Yes (Life-Threatening, Hospitalization, Other)
  Sender: FDA-Public Use
  Company Number: SE-MACLEODS PHARMACEUTICALS US LTD-MAC2021032900

PATIENT

DRUGS (3)
  1. VENLAFAXINE [Suspect]
     Active Substance: VENLAFAXINE HYDROCHLORIDE
     Indication: Depression
     Dosage: 20 GRAM, SINGLE, HIGH DOSE, VENLAFAXIN ACTAVIS 150 MG, VENLAFAXIN 1A FARMA 75 MG, DEPOT CAPSULE
     Route: 048
  2. ZOLPIDEM [Suspect]
     Active Substance: ZOLPIDEM TARTRATE
     Indication: Insomnia
     Dosage: 450 MILLIGRAM, SINGLE
     Route: 048
  3. PROPIOMAZINE [Suspect]
     Active Substance: PROPIOMAZINE
     Indication: Insomnia
     Dosage: 250 MILLIGRAM, SINGLE
     Route: 048

REACTIONS (10)
  - Generalised tonic-clonic seizure [Recovered/Resolved]
  - Cardiac arrest [Recovered/Resolved]
  - Stress cardiomyopathy [Recovered/Resolved]
  - Metabolic acidosis [Recovered/Resolved]
  - Hypokinesia [Recovered/Resolved]
  - Ventricular hypokinesia [Recovered/Resolved]
  - Blood pressure decreased [Recovered/Resolved]
  - Anuria [Recovered/Resolved]
  - Toxicity to various agents [Recovered/Resolved]
  - Intentional overdose [Unknown]
